FAERS Safety Report 5595112-3 (Version None)
Quarter: 2008Q1

REPORT INFORMATION
  Report Type: 
  Country: None (occurrence: None)
  Receive Date: 20080117
  Receipt Date: 20080110
  Transmission Date: 20080703
  Serious: Yes (Hospitalization)
  Sender: FDA-Public Use
  Company Number: US-BOEHRINGER INGELHEIM PHARMACEUTICALS, INC.-2007-BP-24346BP

PATIENT
  Sex: Female

DRUGS (5)
  1. SPIRIVA [Suspect]
     Indication: LUNG DISORDER
     Route: 055
     Dates: start: 20060101
  2. NEXIUM [Suspect]
     Indication: GASTROOESOPHAGEAL REFLUX DISEASE
     Dates: start: 20060101
  3. COMBIVENT [Concomitant]
  4. PULMICORT [Concomitant]
  5. XOPENEX NEB [Concomitant]

REACTIONS (5)
  - CATARACT [None]
  - CONSTIPATION [None]
  - EYE DISORDER [None]
  - NAUSEA [None]
  - PALPITATIONS [None]
